FAERS Safety Report 7629125-4 (Version None)
Quarter: 2011Q3

REPORT INFORMATION
  Report Type: 
  Country: None (occurrence: None)
  Receive Date: 20110715
  Receipt Date: 20110707
  Transmission Date: 20111222
  Serious: Yes (Other)
  Sender: FDA-Public Use
  Company Number: 2011SP031814

PATIENT
  Sex: Female

DRUGS (2)
  1. PEG-INTRON [Suspect]
     Indication: HEPATITIS C
     Dates: start: 20110605
  2. RIBAVIRIN [Suspect]
     Indication: HEPATITIS C
     Dates: start: 20110603

REACTIONS (14)
  - PAIN [None]
  - SCIATICA [None]
  - NAUSEA [None]
  - ABDOMINAL PAIN UPPER [None]
  - WEIGHT DECREASED [None]
  - FATIGUE [None]
  - OVERDOSE [None]
  - BACK PAIN [None]
  - DECREASED APPETITE [None]
  - CHEST PAIN [None]
  - DRY SKIN [None]
  - DYSGEUSIA [None]
  - ASTHENIA [None]
  - ASTHENOPIA [None]
